APPROVED DRUG PRODUCT: GELNIQUE
Active Ingredient: OXYBUTYNIN CHLORIDE
Strength: 10% (100MG/PACKET) **Federal Register determination that product was not discontinued or withdrawn for safety or effectiveness reasons**
Dosage Form/Route: GEL;TRANSDERMAL
Application: N022204 | Product #001
Applicant: ABBVIE INC
Approved: Jan 27, 2009 | RLD: Yes | RS: No | Type: DISCN

PATENTS:
Patent 8920392 | Expires: Mar 26, 2031
Patent 10449173 | Expires: Nov 6, 2029
Patent 9259388 | Expires: Nov 6, 2029